FAERS Safety Report 6550068-1 (Version None)
Quarter: 2010Q1

REPORT INFORMATION
  Report Type: 
  Country: None (occurrence: None)
  Receive Date: 20100119
  Receipt Date: 20100104
  Transmission Date: 20100710
  Serious: Yes (Other)
  Sender: FDA-Public Use
  Company Number: 2009-4304

PATIENT
  Age: 69 Year
  Sex: Female

DRUGS (4)
  1. APO-GO AMPOULES (APO-GO) (APOMORPHINE HYDROCHLORIDE) (APOMORPHINE HYDR [Suspect]
     Indication: DRUG USE FOR UNKNOWN INDICATION
     Dates: start: 20090201
  2. SINEMET [Concomitant]
  3. SINEMET CR [Concomitant]
  4. GABAPENTIN [Concomitant]

REACTIONS (8)
  - CONTUSION [None]
  - EMBOLISM [None]
  - FEELING HOT [None]
  - INFLAMMATION [None]
  - INJECTION SITE ERYTHEMA [None]
  - INJECTION SITE PAIN [None]
  - NO THERAPEUTIC RESPONSE [None]
  - NODULE [None]
